FAERS Safety Report 26011838 (Version 1)
Quarter: 2025Q4

REPORT INFORMATION
  Report Type: Spontaneous
  Country: TW (occurrence: TW)
  Receive Date: 20251107
  Receipt Date: 20251107
  Transmission Date: 20260117
  Serious: Yes (Hospitalization, Other)
  Sender: PFIZER
  Company Number: TW-PFIZER INC-PV202500129547

PATIENT
  Age: 82 Year
  Sex: Female
  Weight: 45.7 kg

DRUGS (20)
  1. UNASYN [Suspect]
     Active Substance: AMPICILLIN SODIUM\SULBACTAM SODIUM
     Indication: Cellulitis
     Dosage: 1000 MG, 4X/DAY (ONCE EVERY 6 HOURS)
     Route: 042
     Dates: start: 20250830, end: 20250830
  2. UNASYN [Suspect]
     Active Substance: AMPICILLIN SODIUM\SULBACTAM SODIUM
     Dosage: 2000 MG, 2X/DAY (ONCE EVERY 12 HOURS)
     Route: 042
     Dates: start: 20250830, end: 20250831
  3. UNASYN [Suspect]
     Active Substance: AMPICILLIN SODIUM\SULBACTAM SODIUM
     Dosage: 2000 MG, 4X/DAY (ONCE EVERY 6 HOURS)
     Route: 042
     Dates: start: 20250901, end: 20250904
  4. UNASYN [Suspect]
     Active Substance: AMPICILLIN SODIUM\SULBACTAM SODIUM
     Dosage: 2000 MG, EVERY 4 HRS (Q4H)
     Route: 042
     Dates: start: 20250904, end: 20250908
  5. UNASYN [Suspect]
     Active Substance: AMPICILLIN SODIUM\SULBACTAM SODIUM
     Dosage: 500 MG, 1X/DAY
     Route: 042
     Dates: start: 20250909, end: 20250909
  6. UNASYN [Suspect]
     Active Substance: AMPICILLIN SODIUM\SULBACTAM SODIUM
     Dosage: 1000 MG, 1X/DAY
     Route: 042
     Dates: start: 20250910, end: 20250910
  7. BIOFERMIN R [ANTIBIOTICS-RESISTANT LACTIC ACID BACTERIAE] [Concomitant]
     Indication: Constipation
     Dosage: 6 MG (1.0 PACK), 2X/DAY (ONCE EVERY 0.5 DAY; TAIWAN TAISHO PHARMACEUTICAL CO., LTD.)
     Route: 048
     Dates: start: 20250906, end: 20251002
  8. DIPHENIDOL [DIFENIDOL HYDROCHLORIDE] [Concomitant]
     Indication: Dizziness
     Dosage: 25 MG (1.0 TAB; SHENGDA CHEMICAL PHARMACEUTICAL CO., LTD.)
     Route: 048
     Dates: start: 20250907, end: 20250908
  9. VITAGEN [GLUCOSE] [Concomitant]
     Indication: Hypoglycaemia
     Dosage: 20 ML (HSIN-TUNG BIOTECHNOLOGY CO., LTD.)
     Route: 042
     Dates: start: 20250907, end: 20250907
  10. BISOPROLOL FUMARATE [Concomitant]
     Active Substance: BISOPROLOL FUMARATE
     Indication: Aortic dissection
     Dosage: 0.625 MG  (0.5 TAB), 1X/DAY (MERCK TAIWAN CO., LTD.)
     Route: 048
     Dates: start: 20250904, end: 20250915
  11. MAGNESIUM OXIDE E [Concomitant]
     Indication: Constipation
     Dosage: 250 MG (1 TAB), 1X/DAY (RONGMIN PHARMACEUTICAL CO., LTD.)
     Route: 048
     Dates: start: 20250830, end: 20250908
  12. PLAQUENIL [Concomitant]
     Active Substance: HYDROXYCHLOROQUINE SULFATE
     Indication: Antiphospholipid syndrome
     Dosage: 200 MG (1 TAB), 2X/DAY (ONCE EVERY 0.5 DAY; SANOFI INC.)
     Route: 048
     Dates: start: 20250830, end: 20250908
  13. PLAVIX [Concomitant]
     Active Substance: CLOPIDOGREL BISULFATE
     Indication: Therapeutic procedure
     Dosage: 75MG (1 TAB), 1X/DAY (SANOFI INC.)
     Route: 048
     Dates: start: 20250830, end: 20250908
  14. NOLVADEX [Concomitant]
     Active Substance: TAMOXIFEN CITRATE
     Indication: Breast cancer
     Dosage: 10MG (1 TAB), 2X/DAY (ONCE EVERY 0.5 DAY; ASTRAZENECA TAIWAN CO., LTD.)
     Route: 048
     Dates: start: 20250830, end: 20251002
  15. LANSOPRAZOLE [Concomitant]
     Active Substance: LANSOPRAZOLE
     Indication: Ulcer
     Dosage: 30 MG (1 TAB; TAKEDA PHARMACEUTICAL INDUSTRIES, LTD. (TAIWAN))
     Route: 048
     Dates: start: 20250830, end: 20250907
  16. CALCIUM CHLORIDE\POTASSIUM CHLORIDE\SODIUM CHLORIDE\SODIUM LACTATE [Concomitant]
     Active Substance: CALCIUM CHLORIDE\POTASSIUM CHLORIDE\SODIUM CHLORIDE\SODIUM LACTATE
     Indication: Acute kidney injury
     Dosage: 500 ML, 1X/DAY OTSUKA PHARMACEUTICAL CO., LTD., TAIWAN)
     Route: 041
     Dates: start: 20250830, end: 20250831
  17. ACETAL [PARACETAMOL] [Concomitant]
     Indication: Pain
     Dosage: 500 MG (1 TAB; RUIAN PHARMACEUTICAL CO., LTD.)
     Route: 048
     Dates: start: 20250830, end: 20251002
  18. SENNAPUR [Concomitant]
     Indication: Constipation
     Dosage: 12.5 MG (1 TAB), 1X/DAY (KEJIN PHARMACEUTICAL TECHNOLOGY CO., LTD.)
     Route: 048
     Dates: start: 20250902, end: 20251002
  19. CEFTRIAXONE SODIUM [Concomitant]
     Active Substance: CEFTRIAXONE SODIUM
     Indication: Cellulitis
     Dosage: 1000 MG, 2X/DAY (ONCE EVERY 12 HOURS; HSIN-TUNG BIOTECHNOLOGY CO., LTD.)
     Route: 041
     Dates: start: 20250910, end: 20250911
  20. LEVOTHYROXINE [Concomitant]
     Active Substance: LEVOTHYROXINE
     Indication: Hypothyroidism
     Dosage: 50 UG (0.5 TAB; ANPEI INTERNATIONAL CO., LTD.)
     Route: 048
     Dates: start: 20250905, end: 20250911

REACTIONS (2)
  - Acute kidney injury [Recovered/Resolved]
  - Oliguria [Recovered/Resolved]

NARRATIVE: CASE EVENT DATE: 20250908
